FAERS Safety Report 23162690 (Version 2)
Quarter: 2024Q2

REPORT INFORMATION
  Report Type: Report from Study
  Country: US (occurrence: US)
  Receive Date: 20231109
  Receipt Date: 20240419
  Transmission Date: 20240716
  Serious: Yes (Death, Hospitalization)
  Sender: FDA-Public Use
  Company Number: US-JNJFOC-20230836387

PATIENT
  Sex: Female
  Weight: 66.4 kg

DRUGS (7)
  1. EPOPROSTENOL SODIUM [Suspect]
     Active Substance: EPOPROSTENOL SODIUM
     Indication: Pulmonary hypertension
     Route: 042
  2. EPOPROSTENOL SODIUM [Suspect]
     Active Substance: EPOPROSTENOL SODIUM
     Route: 042
  3. EPOPROSTENOL SODIUM [Suspect]
     Active Substance: EPOPROSTENOL SODIUM
     Route: 042
  4. EPOPROSTENOL SODIUM [Suspect]
     Active Substance: EPOPROSTENOL SODIUM
     Route: 042
  5. SELEXIPAG [Suspect]
     Active Substance: SELEXIPAG
     Indication: Pulmonary arterial hypertension
     Route: 048
     Dates: start: 202201
  6. MACITENTAN [Suspect]
     Active Substance: MACITENTAN
     Indication: Product used for unknown indication
     Route: 048
  7. TADALAFIL [Concomitant]
     Active Substance: TADALAFIL

REACTIONS (10)
  - Head injury [Fatal]
  - Fall [Fatal]
  - Cerebral haemorrhage [Fatal]
  - Catheter site bruise [Unknown]
  - Oedema peripheral [Unknown]
  - Headache [Unknown]
  - Vomiting [Recovered/Resolved]
  - Nausea [Unknown]
  - Pain in extremity [Unknown]
  - Insomnia [Unknown]
